FAERS Safety Report 18453995 (Version 4)
Quarter: 2020Q4

REPORT INFORMATION
  Report Type: Spontaneous
  Country: US (occurrence: US)
  Receive Date: 20201102
  Receipt Date: 20201113
  Transmission Date: 20210114
  Serious: No
  Sender: FDA-Public Use
  Company Number: US-SA-2020SA301936

PATIENT

DRUGS (4)
  1. NOVOLOG [Concomitant]
     Active Substance: INSULIN ASPART
     Dosage: UNK UNK, QD (DAYTIME)
     Route: 065
  2. LANTUS SOLOSTAR [Suspect]
     Active Substance: INSULIN GLARGINE
     Indication: TYPE 2 DIABETES MELLITUS
     Dosage: 12 IU, QD (IN EVENING)
     Route: 065
     Dates: start: 1995
  3. LANTUS SOLOSTAR [Suspect]
     Active Substance: INSULIN GLARGINE
     Dosage: 11 IU (IF LOW (BLOOD SUGAR))
     Route: 065
  4. LANTUS SOLOSTAR [Suspect]
     Active Substance: INSULIN GLARGINE
     Dosage: 10 IU (BLOOD SUGAR IS AT 80 )
     Route: 065

REACTIONS (3)
  - Blood glucose increased [Recovering/Resolving]
  - Incorrect dose administered by device [Recovering/Resolving]
  - Device operational issue [Recovering/Resolving]
